FAERS Safety Report 18404626 (Version 1)
Quarter: 2020Q4

REPORT INFORMATION
  Report Type: Spontaneous
  Country: CA (occurrence: CA)
  Receive Date: 20201020
  Receipt Date: 20201020
  Transmission Date: 20210114
  Serious: Yes (Hospitalization)
  Sender: FDA-Public Use
  Company Number: CA-ALVOGEN-2020-ALVOGEN-114906

PATIENT
  Sex: Female

DRUGS (2)
  1. TENORETIC [Suspect]
     Active Substance: ATENOLOL\CHLORTHALIDONE
     Indication: PRODUCT USED FOR UNKNOWN INDICATION
     Dosage: ATENOLOL: 100.0MG CHLORTALIDONE: 25.0MG
     Route: 048
  2. PERINDOPRIL [Concomitant]
     Active Substance: PERINDOPRIL
     Indication: PRODUCT USED FOR UNKNOWN INDICATION

REACTIONS (8)
  - Monoplegia [Unknown]
  - Abdominal discomfort [Unknown]
  - Product dispensing error [Unknown]
  - Sciatica [Unknown]
  - Blood pressure increased [Unknown]
  - Headache [Unknown]
  - Product substitution issue [Unknown]
  - Intervertebral disc protrusion [Unknown]
